FAERS Safety Report 7419805-8 (Version None)
Quarter: 2011Q2

REPORT INFORMATION
  Report Type: 
  Country: None (occurrence: None)
  Receive Date: 20110413
  Receipt Date: 20110413
  Transmission Date: 20111010
  Serious: No
  Sender: FDA-Public Use
  Company Number: None

PATIENT
  Sex: Female
  Weight: 90.7194 kg

DRUGS (2)
  1. GABAPENTIN [Suspect]
     Indication: ANALGESIC THERAPY
     Dosage: 400 MG 3 X DAY MOUTH
     Route: 048
     Dates: start: 20110317
  2. GABAPENTIN [Suspect]
     Indication: ANALGESIC THERAPY
     Dosage: 400 MG 3 X DAY MOUTH
     Route: 048
     Dates: start: 20110318

REACTIONS (2)
  - DYSPNOEA [None]
  - DYSPHONIA [None]
